FAERS Safety Report 8183696 (Version 5)
Quarter: 2012Q4

REPORT INFORMATION
  Report Type: Report from Study
  Country: PL (occurrence: PL)
  Receive Date: 20111017
  Receipt Date: 20121227
  Transmission Date: 20130627
  Serious: Yes (Other)
  Sender: FDA-Public Use
  Company Number: PHHO2011PL17406

PATIENT
  Age: 52 Year
  Sex: Female
  Weight: 59 kg

DRUGS (2)
  1. FTY [Suspect]
     Indication: MULTIPLE SCLEROSIS
     Dosage: 0.5 mg, QD
     Route: 048
     Dates: start: 20100319, end: 20111013
  2. ANTEOVIN [Concomitant]
     Indication: CONTRACEPTION
     Dosage: UNK
     Dates: start: 20071229, end: 201101

REACTIONS (2)
  - Basal cell carcinoma [Recovered/Resolved]
  - Vulval abscess [Recovered/Resolved]
